FAERS Safety Report 7259812-1 (Version None)
Quarter: 2011Q1

REPORT INFORMATION
  Report Type: 
  Country: None (occurrence: None)
  Receive Date: 20110130
  Receipt Date: 20100905
  Transmission Date: 20110831
  Serious: No
  Sender: FDA-Public Use
  Company Number: US-ABBOTT-10P-163-0668943-00

PATIENT
  Age: 55 Year
  Sex: Male

DRUGS (5)
  1. METOPROLOL [Concomitant]
     Indication: HYPERTENSION
  2. TRILIPIX [Concomitant]
     Indication: PRODUCT USED FOR UNKNOWN INDICATION
  3. LIPITOR [Concomitant]
     Indication: BLOOD CHOLESTEROL
  4. PAROXETINE HCL [Concomitant]
     Indication: HYPERTENSION
  5. HUMIRA [Suspect]
     Indication: PSORIASIS
     Dates: start: 20100729

REACTIONS (6)
  - SOCIAL ALCOHOL DRINKER [None]
  - VOMITING [None]
  - FEELING ABNORMAL [None]
  - RETCHING [None]
  - URINARY TRACT INFECTION [None]
  - CHROMATURIA [None]
